FAERS Safety Report 8830802 (Version 1)
Quarter: 2012Q4

REPORT INFORMATION
  Report Type: 
  Country: CN (occurrence: CN)
  Receive Date: 20121009
  Receipt Date: 20121009
  Transmission Date: 20130627
  Serious: Yes (Hospitalization)
  Sender: FDA-Public Use
  Company Number: CN-JNJFOC-20121004423

PATIENT
  Sex: Female

DRUGS (3)
  1. TYLENOL [Suspect]
     Indication: RESPIRATORY TRACT INFECTION
     Route: 048
     Dates: start: 20090308, end: 20090308
  2. TYLENOL [Suspect]
     Indication: ANTIPYRESIS
     Route: 048
     Dates: start: 20090308, end: 20090308
  3. TYLENOL [Suspect]
     Indication: ANALGESIC THERAPY
     Route: 048
     Dates: start: 20090308, end: 20090308

REACTIONS (1)
  - Erythema multiforme [Recovered/Resolved]
